FAERS Safety Report 7413827-9 (Version None)
Quarter: 2011Q2

REPORT INFORMATION
  Report Type: 
  Country: None (occurrence: None)
  Receive Date: 20110413
  Receipt Date: 20110401
  Transmission Date: 20111010
  Serious: Yes (Other)
  Sender: FDA-Public Use
  Company Number: US-RB-021133-11

PATIENT
  Age: 53 Year
  Sex: Male

DRUGS (1)
  1. SUBOXONE [Suspect]
     Indication: PRODUCT USED FOR UNKNOWN INDICATION
     Dosage: DOSING INFORMATION IS UNKNOWN
     Route: 065

REACTIONS (9)
  - VENTRICULAR FIBRILLATION [None]
  - PNEUMONIA [None]
  - INCORRECT ROUTE OF DRUG ADMINISTRATION [None]
  - THERAPEUTIC RESPONSE DECREASED [None]
  - SPEECH DISORDER [None]
  - ASTHENIA [None]
  - NIGHT SWEATS [None]
  - ABDOMINAL DISCOMFORT [None]
  - GAIT DISTURBANCE [None]
